FAERS Safety Report 5991198-2 (Version None)
Quarter: 2008Q4

REPORT INFORMATION
  Report Type: 
  Country: None (occurrence: None)
  Receive Date: 20081202
  Receipt Date: 20080110
  Transmission Date: 20090506
  Serious: Yes (Disabling)
  Sender: FDA-Public Use
  Company Number: WAES 0705USA01444

PATIENT
  Age: 68 Year
  Sex: Female
  Weight: 66.2252 kg

DRUGS (6)
  1. FOSAMAX [Suspect]
     Indication: OSTEOPENIA
     Dosage: 70 MG/WKY/PO
     Route: 048
     Dates: start: 20040107, end: 20060601
  2. FOSAMAX [Suspect]
     Indication: OSTEOPOROSIS
     Dosage: 70 MG/WKY/PO
     Route: 048
     Dates: start: 20040107, end: 20060601
  3. FOSAMAX PLUS D [Suspect]
     Indication: OSTEOPENIA
     Dosage: PO
     Route: 048
  4. FOSAMAX PLUS D [Suspect]
     Indication: OSTEOPOROSIS
     Dosage: PO
     Route: 048
  5. BEXTRA [Concomitant]
  6. ESTROPIPATE [Concomitant]

REACTIONS (12)
  - ADVERSE EVENT [None]
  - ATRIAL FIBRILLATION [None]
  - COUGH [None]
  - DYSPNOEA [None]
  - EAR PAIN [None]
  - GINGIVAL RECESSION [None]
  - INTERVERTEBRAL DISC DEGENERATION [None]
  - PAIN IN EXTREMITY [None]
  - PAIN IN JAW [None]
  - RESORPTION BONE INCREASED [None]
  - RESPIRATORY DISORDER [None]
  - THERMAL BURN [None]
